FAERS Safety Report 4417534-6 (Version None)
Quarter: 2004Q2

REPORT INFORMATION
  Report Type: 
  Country: None (occurrence: None)
  Receive Date: 20040625
  Receipt Date: 20040428
  Transmission Date: 20050107
  Serious: No
  Sender: FDA-Public Use
  Company Number: 206261

PATIENT
  Sex: Female

DRUGS (4)
  1. AVASTIN [Suspect]
     Dosage: INTRAVENOUS
     Route: 042
     Dates: start: 20040101
  2. FLUOROURACIL [Concomitant]
  3. LEUCOVORIN CALCIUM [Concomitant]
  4. OXALIPLATIN (OXALIPLATIN) [Concomitant]

REACTIONS (3)
  - DYSPNOEA [None]
  - HYPERTENSION [None]
  - OXYGEN SATURATION DECREASED [None]
